FAERS Safety Report 18233812 (Version 1)
Quarter: 2020Q3

REPORT INFORMATION
  Report Type: Spontaneous
  Country: US (occurrence: US)
  Receive Date: 20200904
  Receipt Date: 20200904
  Transmission Date: 20201103
  Serious: No
  Sender: FDA-Public Use
  Company Number: US-KYOWAKIRIN-2020BKK014198

PATIENT

DRUGS (2)
  1. NOURIANZ [Suspect]
     Active Substance: ISTRADEFYLLINE
     Indication: PARKINSON^S DISEASE
     Dosage: 40 MG
     Route: 065
  2. NOURIANZ [Suspect]
     Active Substance: ISTRADEFYLLINE
     Dosage: 20 MG
     Route: 065

REACTIONS (2)
  - Adverse event [Unknown]
  - Wrong technique in product usage process [Unknown]
